FAERS Safety Report 18109884 (Version 2)
Quarter: 2020Q3

REPORT INFORMATION
  Report Type: Report from Study
  Country: CA (occurrence: CA)
  Receive Date: 20200804
  Receipt Date: 20200908
  Transmission Date: 20201103
  Serious: Yes (Other)
  Sender: FDA-Public Use
  Company Number: CA-NALPROPION PHARMACEUTICALS INC.-2020-010739

PATIENT

DRUGS (5)
  1. MAXALT [Concomitant]
     Active Substance: RIZATRIPTAN BENZOATE
     Indication: MIGRAINE
     Dosage: PRN (AS NEEDED) (10 MG)
     Route: 048
  2. CONTRAVE [Suspect]
     Active Substance: BUPROPION HYDROCHLORIDE\NALTREXONE HYDROCHLORIDE
     Dosage: STRENGTH: 90MG/8MG (2 DOSAGE FORMS, 2 IN 1 D)
     Route: 048
     Dates: start: 20200608
  3. CONTRAVE [Suspect]
     Active Substance: BUPROPION HYDROCHLORIDE\NALTREXONE HYDROCHLORIDE
     Dosage: STRENGTH: 90MG/8MG 2 TABLETS IN THE MORNING AND 1 TABLET IN THE EVENING
     Route: 048
     Dates: start: 2020, end: 2020
  4. CONTRAVE [Suspect]
     Active Substance: BUPROPION HYDROCHLORIDE\NALTREXONE HYDROCHLORIDE
     Dosage: STRENGTH: 90MG/8MG (2 DOSAGE FORMS, 2 IN 1 D)
     Route: 048
     Dates: start: 2020
  5. CONTRAVE [Suspect]
     Active Substance: BUPROPION HYDROCHLORIDE\NALTREXONE HYDROCHLORIDE
     Indication: WEIGHT CONTROL
     Dosage: STARTED: 18/MAY/2020 (APPROXIMATELY); STRENGTH: 90MG/8MG
     Route: 048
     Dates: start: 20200518, end: 2020

REACTIONS (9)
  - Gastric disorder [Not Recovered/Not Resolved]
  - Headache [Unknown]
  - Sleep apnoea syndrome [Not Recovered/Not Resolved]
  - Libido decreased [Not Recovered/Not Resolved]
  - Taste disorder [Recovered/Resolved]
  - Weight increased [Recovered/Resolved]
  - Therapeutic response unexpected [Unknown]
  - Hunger [Unknown]
  - Dyspepsia [Unknown]

NARRATIVE: CASE EVENT DATE: 2020
